FAERS Safety Report 24178491 (Version 1)
Quarter: 2024Q3

REPORT INFORMATION
  Report Type: Spontaneous
  Country: FR (occurrence: FR)
  Receive Date: 20240806
  Receipt Date: 20240806
  Transmission Date: 20241016
  Serious: Yes (Hospitalization)
  Sender: AUROBINDO
  Company Number: FR-AFSSAPS-PP2024000834

PATIENT
  Age: 14 Year
  Sex: Male
  Weight: 107 kg

DRUGS (4)
  1. DIAZEPAM [Suspect]
     Active Substance: DIAZEPAM
     Indication: Agitation
     Dosage: 200 MILLIGRAM, ONCE A DAY (200 MG/J)
     Route: 048
     Dates: start: 20240624, end: 20240701
  2. ABILIFY MAINTENA [Suspect]
     Active Substance: ARIPIPRAZOLE
     Indication: Schizophrenia
     Dosage: 400 MILLIGRAM (400 MG/J)
     Route: 030
     Dates: start: 20240607, end: 20240607
  3. ARIPIPRAZOLE [Suspect]
     Active Substance: ARIPIPRAZOLE
     Indication: Schizophrenia
     Dosage: 400 MILLIGRAM (15 MG/J) (1FP)
     Route: 048
     Dates: start: 20240626, end: 20240701
  4. LOXAPINE [Suspect]
     Active Substance: LOXAPINE
     Indication: Schizophrenia
     Dosage: 200 MILLIGRAM, ONCE A DAY (200 MG/J)
     Route: 048
     Dates: start: 20240626, end: 20240701

REACTIONS (6)
  - Psychiatric decompensation [Recovering/Resolving]
  - Confusional state [Recovering/Resolving]
  - Tachycardia [Recovering/Resolving]
  - Hypertension [Recovering/Resolving]
  - Extrapyramidal disorder [Recovering/Resolving]
  - Psychomotor retardation [Recovering/Resolving]

NARRATIVE: CASE EVENT DATE: 20240701
